FAERS Safety Report 12697732 (Version 3)
Quarter: 2016Q3

REPORT INFORMATION
  Report Type: Report from Study
  Country: CA (occurrence: CA)
  Receive Date: 20160830
  Receipt Date: 20160922
  Transmission Date: 20161109
  Serious: Yes (Other)
  Sender: FDA-Public Use
  Company Number: PHHY2016CA069889

PATIENT
  Age: 59 Year
  Sex: Female

DRUGS (11)
  1. XOLAIR [Suspect]
     Active Substance: OMALIZUMAB
     Dosage: 150 MG, EVERY 4 WEEKS
     Route: 058
     Dates: start: 20160907, end: 20160907
  2. CICLOSPORIN [Suspect]
     Active Substance: CYCLOSPORINE
     Indication: CHRONIC SPONTANEOUS URTICARIA
     Dosage: 100 MG, QD
     Route: 065
     Dates: start: 201508, end: 201512
  3. XOLAIR [Suspect]
     Active Substance: OMALIZUMAB
     Indication: CHRONIC SPONTANEOUS URTICARIA
     Dosage: 150 MG, ONCE IN EVERY 4 WEEKS
     Route: 058
     Dates: start: 20160510
  4. ATARAX [Concomitant]
     Active Substance: HYDROXYZINE\HYDROXYZINE HYDROCHLORIDE
     Indication: PRODUCT USED FOR UNKNOWN INDICATION
     Route: 065
  5. SYNTHROID [Concomitant]
     Active Substance: LEVOTHYROXINE SODIUM
     Indication: PRODUCT USED FOR UNKNOWN INDICATION
     Route: 065
  6. XOLAIR [Suspect]
     Active Substance: OMALIZUMAB
     Dosage: UNK
     Route: 058
     Dates: start: 20160607
  7. CLARITIN [Concomitant]
     Active Substance: LORATADINE
     Indication: PRODUCT USED FOR UNKNOWN INDICATION
     Route: 065
  8. XOLAIR [Suspect]
     Active Substance: OMALIZUMAB
     Dosage: UNK
     Route: 058
     Dates: start: 20160803
  9. XOLAIR [Suspect]
     Active Substance: OMALIZUMAB
     Dosage: UNK
     Route: 058
     Dates: start: 20160706
  10. PREDNISONE. [Concomitant]
     Active Substance: PREDNISONE
     Indication: PRODUCT USED FOR UNKNOWN INDICATION
     Dosage: UNK
     Route: 065
  11. REACTINE//CETIRIZINE HYDROCHLORIDE [Concomitant]
     Active Substance: CETIRIZINE HYDROCHLORIDE
     Indication: PRODUCT USED FOR UNKNOWN INDICATION
     Route: 065

REACTIONS (21)
  - Concomitant disease aggravated [Unknown]
  - Diarrhoea [Unknown]
  - Rash [Unknown]
  - Formication [Unknown]
  - Product use issue [Unknown]
  - Sepsis [Unknown]
  - Feeling hot [Unknown]
  - Chest discomfort [Unknown]
  - Pain [Unknown]
  - Malaise [Unknown]
  - Photosensitivity reaction [Unknown]
  - Pyrexia [Unknown]
  - Erythema [Unknown]
  - Cellulitis [Unknown]
  - Palpitations [Unknown]
  - Dizziness [Unknown]
  - Injection site erythema [Unknown]
  - Temperature intolerance [Unknown]
  - Urticaria [Unknown]
  - Nasal oedema [Unknown]
  - Sinus headache [Unknown]

NARRATIVE: CASE EVENT DATE: 20160516
